FAERS Safety Report 17644486 (Version 1)
Quarter: 2020Q2

REPORT INFORMATION
  Report Type: Spontaneous
  Country: US (occurrence: US)
  Receive Date: 20200408
  Receipt Date: 20200408
  Transmission Date: 20200713
  Serious: No
  Sender: FDA-Public Use
  Company Number: NVSC2020US094746

PATIENT
  Sex: Male

DRUGS (2)
  1. PACLITAXEL. [Suspect]
     Active Substance: PACLITAXEL
     Indication: METASTATIC NEOPLASM
     Dosage: UNK UNK, Q3W (4 CYCLES)
     Route: 065
  2. CARBOPLATIN. [Suspect]
     Active Substance: CARBOPLATIN
     Indication: METASTATIC NEOPLASM
     Dosage: UNK UNK, Q3W (4 CYCLES)
     Route: 065

REACTIONS (1)
  - Therapeutic response decreased [Unknown]
